FAERS Safety Report 25824154 (Version 3)
Quarter: 2025Q4

REPORT INFORMATION
  Report Type: Report from Study
  Country: AU (occurrence: AU)
  Receive Date: 20250919
  Receipt Date: 20251006
  Transmission Date: 20260117
  Serious: Yes (Other)
  Sender: EMD SERONO INC
  Company Number: AU-Merck Healthcare KGaA-2025046814

PATIENT
  Sex: Female

DRUGS (1)
  1. MAVENCLAD [Suspect]
     Active Substance: CLADRIBINE
     Indication: Multiple sclerosis
     Dosage: YEAR ONE WEEK ONE THERAPY

REACTIONS (3)
  - Cellulitis [Unknown]
  - Arthropod bite [Unknown]
  - Lymphocyte count decreased [Unknown]
